FAERS Safety Report 4471591-X (Version None)
Quarter: 2004Q4

REPORT INFORMATION
  Report Type: 
  Country: None (occurrence: None)
  Receive Date: 20041012
  Receipt Date: 20041005
  Transmission Date: 20050328
  Serious: Yes (Hospitalization)
  Sender: FDA-Public Use
  Company Number: FR-GLAXOSMITHKLINE-B0347137A

PATIENT
  Age: 57 Year
  Sex: Female

DRUGS (1)
  1. AUGMENTIN '125' [Suspect]
     Indication: TOOTH INFECTION
     Dosage: 1UNIT SINGLE DOSE
     Route: 048
     Dates: start: 20040918, end: 20040918

REACTIONS (8)
  - ARTHRALGIA [None]
  - HYPERSENSITIVITY [None]
  - JOINT SWELLING [None]
  - MALAISE [None]
  - OEDEMA [None]
  - PARAESTHESIA [None]
  - PRURITUS [None]
  - RASH ERYTHEMATOUS [None]
